FAERS Safety Report 22754373 (Version 4)
Quarter: 2023Q4

REPORT INFORMATION
  Report Type: Spontaneous
  Country: SK (occurrence: SK)
  Receive Date: 20230727
  Receipt Date: 20231008
  Transmission Date: 20240110
  Serious: Yes (Life-Threatening, Hospitalization, Other)
  Sender: FDA-Public Use
  Company Number: SK-STRIDES ARCOLAB LIMITED-2023SP012023

PATIENT
  Age: 75 Year
  Sex: Female

DRUGS (3)
  1. PROPAFENONE [Suspect]
     Active Substance: PROPAFENONE
     Indication: Product used for unknown indication
     Dosage: 425 MILLIGRAM, BID, 425 MG AS LOADING DOSE IN TABLET FORM THEN AFTER 12 HOURS, 425 MG AGAIN
     Route: 065
  2. PROPAFENONE [Suspect]
     Active Substance: PROPAFENONE
     Dosage: 425 MILLIGRAM
     Route: 065
  3. METFORMIN [Suspect]
     Active Substance: METFORMIN HYDROCHLORIDE
     Indication: Type 2 diabetes mellitus
     Dosage: UNK
     Route: 048

REACTIONS (26)
  - Atrial fibrillation [Recovered/Resolved]
  - Sinus tachycardia [Recovered/Resolved]
  - Hypernatraemia [Recovered/Resolved]
  - Drug level increased [Unknown]
  - Stroke volume increased [Unknown]
  - Hyperkinetic heart syndrome [Unknown]
  - Hypothermia [Recovered/Resolved]
  - Hypoglycaemia [Recovered/Resolved]
  - Haemodynamic instability [Recovered/Resolved]
  - Lactic acidosis [Recovered/Resolved]
  - Gastrointestinal haemorrhage [Recovered/Resolved]
  - Hyperlactacidaemia [Recovered/Resolved]
  - Arrhythmia [Unknown]
  - Acute kidney injury [Recovered/Resolved]
  - Cardiogenic shock [Recovered/Resolved]
  - Hypotension [Recovered/Resolved]
  - Hypercreatininaemia [Recovered/Resolved]
  - Altered state of consciousness [Recovered/Resolved]
  - Fibrinolysis [Recovered/Resolved]
  - Fluid retention [Recovered/Resolved]
  - Hypocapnia [Recovered/Resolved]
  - Mineral metabolism disorder [Recovered/Resolved]
  - Blood urea increased [Recovered/Resolved]
  - Angiopathy [Recovered/Resolved]
  - Cardiac failure [Recovered/Resolved]
  - Incorrect dose administered [Unknown]
